FAERS Safety Report 6999635-1 (Version None)
Quarter: 2010Q3

REPORT INFORMATION
  Report Type: 
  Country: None (occurrence: None)
  Receive Date: 20100920
  Receipt Date: 20100209
  Transmission Date: 20110219
  Serious: No
  Sender: FDA-Public Use
  Company Number: US-ASTRAZENECA-2010SE06011

PATIENT
  Age: 620 Month
  Sex: Female
  Weight: 72.6 kg

DRUGS (6)
  1. SEROQUEL XR [Suspect]
     Indication: BIPOLAR DISORDER
     Route: 048
     Dates: start: 20090601
  2. VICODIN [Concomitant]
  3. XANAX [Concomitant]
  4. ADDERALL 10 [Concomitant]
  5. PROZAC [Concomitant]
  6. PREMARIN [Concomitant]

REACTIONS (2)
  - AMNESIA [None]
  - SOMNOLENCE [None]
